FAERS Safety Report 6869111-5 (Version None)
Quarter: 2010Q3

REPORT INFORMATION
  Report Type: 
  Country: None (occurrence: None)
  Receive Date: 20100722
  Receipt Date: 20080701
  Transmission Date: 20110219
  Serious: No
  Sender: FDA-Public Use
  Company Number: US-PFIZER INC-2008056324

PATIENT
  Sex: Female
  Weight: 103.42 kg

DRUGS (3)
  1. CHANTIX [Suspect]
     Indication: SMOKING CESSATION THERAPY
     Dates: start: 20080101
  2. LEXAPRO [Suspect]
  3. PREVACID [Concomitant]

REACTIONS (3)
  - DRUG SCREEN FALSE POSITIVE [None]
  - NAUSEA [None]
  - VOMITING [None]
